FAERS Safety Report 17064473 (Version 1)
Quarter: 2019Q4

REPORT INFORMATION
  Report Type: Spontaneous
  Country: US (occurrence: US)
  Receive Date: 20191122
  Receipt Date: 20191122
  Transmission Date: 20200122
  Serious: No
  Sender: FDA-Public Use
  Company Number: US-PFIZER INC-2019503630

PATIENT
  Age: 63 Year
  Sex: Female
  Weight: 82 kg

DRUGS (1)
  1. IBRANCE [Suspect]
     Active Substance: PALBOCICLIB
     Indication: BREAST CANCER
     Dosage: 75 MG, CYCLIC (DAILY FOR 21 DAYS, REPEAT EVERY 28 DA)
     Route: 048
     Dates: start: 20190601, end: 201911

REACTIONS (3)
  - Urinary tract infection [Unknown]
  - Pneumonitis [Unknown]
  - Vaginal haemorrhage [Unknown]
